FAERS Safety Report 4618077-7 (Version None)
Quarter: 2005Q1

REPORT INFORMATION
  Report Type: 
  Country: None (occurrence: None)
  Receive Date: 20050322
  Receipt Date: 20050314
  Transmission Date: 20050727
  Serious: Yes (Hospitalization, Other)
  Sender: FDA-Public Use
  Company Number: 001-0945-980292

PATIENT
  Age: 51 Year
  Sex: Male

DRUGS (5)
  1. NEURONTIN [Suspect]
     Indication: PAIN
     Dosage: 1200 MG (300 MG, 4 IN 1 D), ORAL
     Route: 048
     Dates: start: 19960919, end: 19980320
  2. CARISPRODOL (CARISPRODOL) [Concomitant]
  3. HYDROCODONE BITARTRATE [Concomitant]
  4. AMITRIPTYLINE HCL [Concomitant]
  5. FLUOXETINE HCL [Concomitant]

REACTIONS (18)
  - CHRONIC OBSTRUCTIVE PULMONARY DISEASE [None]
  - DEPRESSION [None]
  - DRUG EFFECT DECREASED [None]
  - DYSGEUSIA [None]
  - DYSURIA [None]
  - EPIDIDYMITIS [None]
  - FEELING ABNORMAL [None]
  - HEADACHE [None]
  - INFLUENZA LIKE ILLNESS [None]
  - INSOMNIA [None]
  - NEOPLASM [None]
  - PAIN [None]
  - PANCREATITIS [None]
  - PNEUMONIA MYCOPLASMAL [None]
  - RESPIRATORY FAILURE [None]
  - SUICIDAL IDEATION [None]
  - SWOLLEN TONGUE [None]
  - UPPER RESPIRATORY TRACT INFECTION [None]
